FAERS Safety Report 5475181-1 (Version None)
Quarter: 2007Q4

REPORT INFORMATION
  Report Type: 
  Country: None (occurrence: None)
  Receive Date: 20071002
  Receipt Date: 20070920
  Transmission Date: 20080405
  Serious: Yes (Death, Other)
  Sender: FDA-Public Use
  Company Number: CN-PFIZER INC-2007075324

PATIENT
  Age: 74 Year
  Sex: Male

DRUGS (3)
  1. VFEND [Suspect]
     Indication: FUNGAL INFECTION
     Route: 048
     Dates: start: 20070903, end: 20070909
  2. MEROPENEM [Concomitant]
  3. INDOMETHACIN [Concomitant]
     Indication: PYREXIA
     Route: 048
     Dates: start: 20070830, end: 20070901

REACTIONS (4)
  - HAEMATEMESIS [None]
  - HAEMOGLOBIN DECREASED [None]
  - PLATELET COUNT DECREASED [None]
  - WHITE BLOOD CELL COUNT DECREASED [None]
